FAERS Safety Report 19201539 (Version 3)
Quarter: 2021Q2

REPORT INFORMATION
  Report Type: Spontaneous
  Country: US (occurrence: US)
  Receive Date: 20210430
  Receipt Date: 20210603
  Transmission Date: 20210717
  Serious: Yes (Other)
  Sender: FDA-Public Use
  Company Number: US-PFIZER INC-2021438604

PATIENT
  Age: 73 Year
  Sex: Female

DRUGS (1)
  1. IBRANCE [Suspect]
     Active Substance: PALBOCICLIB
     Dosage: 125 MG
     Dates: start: 20210413

REACTIONS (8)
  - Decreased appetite [Recovering/Resolving]
  - Fluid retention [Recovering/Resolving]
  - Dysphagia [Unknown]
  - Kidney infection [Unknown]
  - Fatigue [Recovering/Resolving]
  - Stomatitis [Unknown]
  - Circumstance or information capable of leading to medication error [Unknown]
  - Blood iron decreased [Unknown]

NARRATIVE: CASE EVENT DATE: 20210518
